FAERS Safety Report 13650171 (Version 2)
Quarter: 2017Q4

REPORT INFORMATION
  Report Type: Spontaneous
  Country: US (occurrence: US)
  Receive Date: 20170614
  Receipt Date: 20171010
  Transmission Date: 20180320
  Serious: Yes (Other)
  Sender: FDA-Public Use
  Company Number: US-SUN PHARMACEUTICAL INDUSTRIES LTD-2017US-143021

PATIENT
  Age: 34 Year
  Sex: Male

DRUGS (5)
  1. AMLODIPINE [Concomitant]
     Active Substance: AMLODIPINE BESYLATE
     Indication: PRODUCT USED FOR UNKNOWN INDICATION
     Dosage: UNK
     Route: 065
     Dates: start: 20150307
  2. NIACIN. [Concomitant]
     Active Substance: NIACIN
     Dosage: 500 UNK, UNK
     Route: 065
  3. NIACIN. [Concomitant]
     Active Substance: NIACIN
     Indication: PRODUCT USED FOR UNKNOWN INDICATION
     Dosage: 500 MG, DAILY
     Route: 065
     Dates: start: 20150409
  4. NIACIN. [Concomitant]
     Active Substance: NIACIN
     Dosage: 1 G, UNK
     Route: 065
     Dates: start: 20150501
  5. ATORVASTATIN [Suspect]
     Active Substance: ATORVASTATIN
     Indication: APOLIPOPROTEIN INCREASED
     Dosage: 40 MG, DAILY
     Route: 065
     Dates: start: 20170307

REACTIONS (2)
  - Ischaemic stroke [Unknown]
  - Drug ineffective [Unknown]
